FAERS Safety Report 8499317-3 (Version None)
Quarter: 2012Q3

REPORT INFORMATION
  Report Type: 
  Country: None (occurrence: None)
  Receive Date: 20120710
  Receipt Date: 20120706
  Transmission Date: 20120928
  Serious: Yes (Death, Life-Threatening, Other)
  Sender: FDA-Public Use
  Company Number: PHHY2012FR027455

PATIENT
  Sex: Female
  Weight: 75 kg

DRUGS (5)
  1. ZOLEDRONOC ACID [Suspect]
     Route: 042
  2. TENORMIN [Concomitant]
     Indication: HYPERTENSION
     Dosage: 1 TABLET DAILY
  3. ENALAPRIL MALEATE [Concomitant]
     Indication: HYPERTENSION
     Dosage: ONE  TABLET DAILY
  4. OXYGEN THERAPY [Concomitant]
  5. SIMVASTATIN [Concomitant]
     Indication: HYPERCHOLESTEROLAEMIA
     Dosage: 1 TABLET DAILY

REACTIONS (2)
  - LOSS OF CONSCIOUSNESS [None]
  - SUDDEN DEATH [None]
